FAERS Safety Report 4527750-0 (Version None)
Quarter: 2004Q4

REPORT INFORMATION
  Report Type: 
  Country: None (occurrence: None)
  Receive Date: 20041123
  Receipt Date: 20040203
  Transmission Date: 20050328
  Serious: Yes (Hospitalization)
  Sender: FDA-Public Use
  Company Number: 2003037060

PATIENT
  Age: 75 Year
  Sex: Female
  Weight: 58.9676 kg

DRUGS (2)
  1. LIPITOR [Suspect]
     Indication: BLOOD CHOLESTEROL INCREASED
     Dosage: 10 MG , ORAL
     Route: 048
  2. AMLODIPINE BESYLATE [Concomitant]

REACTIONS (11)
  - ASTHENIA [None]
  - BLOOD CHOLESTEROL INCREASED [None]
  - DIARRHOEA [None]
  - DIFFICULTY IN WALKING [None]
  - ENZYME ABNORMALITY [None]
  - FATIGUE [None]
  - HEART RATE IRREGULAR [None]
  - MYALGIA [None]
  - SENSATION OF HEAVINESS [None]
  - VENTRICULAR EXTRASYSTOLES [None]
  - VOMITING [None]
